FAERS Safety Report 21000047 (Version 2)
Quarter: 2022Q3

REPORT INFORMATION
  Report Type: Spontaneous
  Country: CN (occurrence: CN)
  Receive Date: 20220623
  Receipt Date: 20220705
  Transmission Date: 20221026
  Serious: Yes (Hospitalization, Other)
  Sender: FDA-Public Use
  Company Number: CN-GILEAD-2022-0585930

PATIENT
  Age: 50 Year
  Sex: Male

DRUGS (1)
  1. BIKTARVY [Suspect]
     Active Substance: BICTEGRAVIR SODIUM\EMTRICITABINE\TENOFOVIR ALAFENAMIDE FUMARATE
     Indication: Acquired immunodeficiency syndrome
     Dosage: 1 DOSAGE FORM, QD
     Route: 048
     Dates: start: 202201

REACTIONS (3)
  - Immune reconstitution inflammatory syndrome [Unknown]
  - Headache [Recovering/Resolving]
  - Meningitis cryptococcal [Recovered/Resolved]

NARRATIVE: CASE EVENT DATE: 20220605
